FAERS Safety Report 4719794-0 (Version None)
Quarter: 2005Q3

REPORT INFORMATION
  Report Type: 
  Country: None (occurrence: None)
  Receive Date: 20050721
  Receipt Date: 20041029
  Transmission Date: 20060218
  Serious: No
  Sender: FDA-Public Use
  Company Number: 200417670

PATIENT

DRUGS (2)
  1. AVANDIA [Suspect]
     Indication: DRUG USE FOR UNKNOWN INDICATION
     Dosage: 8MG PER DAY
     Route: 048
  2. AMARYL [Suspect]
     Indication: DRUG USE FOR UNKNOWN INDICATION
     Dosage: 8MG PER DAY
     Route: 048

REACTIONS (1)
  - MEDICATION ERROR [None]
